FAERS Safety Report 6118806-X (Version None)
Quarter: 2009Q1

REPORT INFORMATION
  Report Type: 
  Country: None (occurrence: None)
  Receive Date: 20090316
  Receipt Date: 20090305
  Transmission Date: 20090719
  Serious: Yes (Other)
  Sender: FDA-Public Use
  Company Number: PHHY2009FR08283

PATIENT
  Age: 88 Year
  Sex: Male

DRUGS (6)
  1. EXELON [Suspect]
     Route: 048
  2. EXELON [Suspect]
     Dosage: 4.6 MG, QD
     Route: 062
     Dates: start: 20090216
  3. DEPAKENE [Concomitant]
     Dosage: UNK
  4. OMIX [Concomitant]
     Dosage: UNK
  5. ALDACTAZINE [Concomitant]
     Dosage: UNK
  6. KARDEGIC [Concomitant]
     Dosage: UNK

REACTIONS (2)
  - CHOLESTASIS [None]
  - CYTOLYTIC HEPATITIS [None]
